FAERS Safety Report 12216324 (Version 1)
Quarter: 2016Q1

REPORT INFORMATION
  Report Type: Spontaneous
  Country: SK (occurrence: SK)
  Receive Date: 20160329
  Receipt Date: 20160329
  Transmission Date: 20160526
  Serious: Yes (Other)
  Sender: FDA-Public Use
  Company Number: SK-ACCORD-039114

PATIENT
  Age: 42 Year
  Sex: Male

DRUGS (5)
  1. TACROLIMUS. [Suspect]
     Active Substance: TACROLIMUS
     Indication: IMMUNOSUPPRESSION
  2. PREDNISONE. [Suspect]
     Active Substance: PREDNISONE
     Indication: IMMUNOSUPPRESSION
     Dosage: 20 MG/DAY WITH GRADUAL REDUCTION TO 10 MG/DAY FOR 1 MONTH AND MAINTAINED AT ABOUT 1 MG/DAY.
  3. ANTITHYMOCYTE IMMUNOGLOBULIN [Concomitant]
     Active Substance: THYMOCYTE IMMUNE GLOBULIN NOS
  4. CEFUROXIME. [Concomitant]
     Active Substance: CEFUROXIME
     Indication: PROPHYLAXIS
     Dosage: 1.5 G PRE-TRANSPLANT AND OVER THE NEXT 48 HOURS AND 750 MG 8 HOURS INTRAVENOUSLY
  5. MYCOPHENOLIC ACID. [Suspect]
     Active Substance: MYCOPHENOLIC ACID
     Indication: IMMUNOSUPPRESSION
     Dosage: KIDNEY TRANSPLANTS RECEPIENT

REACTIONS (1)
  - Endocarditis [Recovered/Resolved]
